FAERS Safety Report 8051168 (Version 2)
Quarter: 2013Q3

REPORT INFORMATION
  Report Type: Spontaneous
  Country: US (occurrence: US)
  Receive Date: 20110725
  Receipt Date: 20130802
  Transmission Date: 20140515
  Serious: No
  Sender: FDA-Public Use
  Company Number: US-BRISTOL-MYERS SQUIBB COMPANY-15597396

PATIENT
  Age: 81 Year
  Sex: Male
  Weight: 83.9 kg

DRUGS (2)
  1. COUMADIN [Suspect]
     Dosage: 1MG TABS, CHANGED TO 6 MG
     Dates: start: 198503
  2. AMBIEN [Concomitant]

REACTIONS (1)
  - Migraine [Unknown]
